FAERS Safety Report 6882220-X (Version None)
Quarter: 2010Q3

REPORT INFORMATION
  Report Type: 
  Country: None (occurrence: None)
  Receive Date: 20100714
  Receipt Date: 20100714
  Transmission Date: 20110219
  Serious: Yes (Other)
  Sender: FDA-Public Use
  Company Number: None

PATIENT
  Age: 29 Year
  Sex: Female
  Weight: 72.5755 kg

DRUGS (1)
  1. BLAIREX SIMPLE SALINE N/A BLAIREX LABRATORIES [Suspect]
     Indication: EAR PIERCING
     Dosage: SPRAY TO SOAK COTTON 4X DAILY CUTANEOUS
     Route: 003
     Dates: start: 20100513, end: 20100529

REACTIONS (2)
  - INFECTION [None]
  - LACERATION [None]
